FAERS Safety Report 9879281 (Version 2)
Quarter: 2014Q1

REPORT INFORMATION
  Report Type: Spontaneous
  Country: US (occurrence: US)
  Receive Date: 20140206
  Receipt Date: 20140206
  Transmission Date: 20141002
  Serious: No
  Sender: FDA-Public Use
  Company Number: US-ALLERGAN-1314576US

PATIENT
  Sex: Female

DRUGS (2)
  1. BOTOX COSMETIC [Suspect]
     Indication: SKIN WRINKLING
     Dosage: 33.4 UNITS, SINGLE
     Route: 030
     Dates: start: 20130617, end: 20130617
  2. BIRTH CONTROL PATCH NOS [Concomitant]
     Indication: CONTRACEPTION

REACTIONS (14)
  - Injection site reaction [Not Recovered/Not Resolved]
  - Muscle atrophy [Not Recovered/Not Resolved]
  - Swelling face [Recovered/Resolved]
  - Facial paresis [Recovered/Resolved]
  - Muscular weakness [Not Recovered/Not Resolved]
  - Muscular weakness [Not Recovered/Not Resolved]
  - Dysphagia [Recovered/Resolved]
  - Pollakiuria [Not Recovered/Not Resolved]
  - Urinary retention [Not Recovered/Not Resolved]
  - Ear pain [Recovered/Resolved]
  - Eyelid sensory disorder [Unknown]
  - Influenza like illness [Unknown]
  - Urinary incontinence [Unknown]
  - Eyelid ptosis [Unknown]
